FAERS Safety Report 15369499 (Version 6)
Quarter: 2022Q2

REPORT INFORMATION
  Report Type: Spontaneous
  Country: US (occurrence: US)
  Receive Date: 20180911
  Receipt Date: 20220614
  Transmission Date: 20220721
  Serious: No
  Sender: FDA-Public Use
  Company Number: US-PFIZER INC-2017443441

PATIENT
  Age: 70 Year
  Sex: Male

DRUGS (4)
  1. LYRICA [Suspect]
     Active Substance: PREGABALIN
     Indication: Neuropathy peripheral
     Dosage: 150 MG, 3X/DAY
     Route: 048
     Dates: start: 20171006
  2. LYRICA [Suspect]
     Active Substance: PREGABALIN
     Indication: Diabetic neuropathy
     Dosage: 150 MG, 4X/DAY
     Route: 048
  3. LYRICA [Suspect]
     Active Substance: PREGABALIN
     Indication: Leg amputation
     Dosage: 150 MG, 4X/DAY
     Route: 048
     Dates: start: 20190212
  4. LYRICA [Suspect]
     Active Substance: PREGABALIN
     Indication: Hepatocellular carcinoma

REACTIONS (3)
  - Off label use [Unknown]
  - Product use issue [Unknown]
  - Fatigue [Unknown]
